FAERS Safety Report 8017002-9 (Version None)
Quarter: 2012Q1

REPORT INFORMATION
  Report Type: 
  Country: None (occurrence: None)
  Receive Date: 20120102
  Receipt Date: 20111228
  Transmission Date: 20120608
  Serious: Yes (Hospitalization, Other)
  Sender: FDA-Public Use
  Company Number: PHHY2009JP08107

PATIENT
  Sex: Female
  Weight: 40 kg

DRUGS (10)
  1. EXJADE [Suspect]
     Indication: IRON OVERLOAD
     Dosage: 1000 MG,DAILY
     Route: 048
     Dates: start: 20081107, end: 20090402
  2. URSO 250 [Concomitant]
     Indication: PROPHYLAXIS
     Dosage: 150 MG
     Route: 048
     Dates: start: 20081127, end: 20090416
  3. EXJADE [Suspect]
     Dosage: 500 MG,DAILY
     Route: 048
     Dates: start: 20090403, end: 20090607
  4. JUZENTAIHOTO [Concomitant]
     Indication: MYELODYSPLASTIC SYNDROME
     Dosage: 7.5 G
     Route: 048
     Dates: start: 20060206, end: 20090803
  5. EXJADE [Suspect]
     Dosage: 500 MG,DAILY
     Route: 048
     Dates: start: 20090703, end: 20091106
  6. EXJADE [Suspect]
     Dosage: 500 MG, DAILY
     Route: 048
     Dates: start: 20100108, end: 20100218
  7. ALLEGRA [Suspect]
     Indication: PRURITUS
     Dosage: 120 MG, DAILY
     Route: 048
     Dates: start: 20090501, end: 20090608
  8. SODIUM CHLORIDE [Concomitant]
     Dosage: 4.5 G,
     Route: 048
     Dates: start: 20080819, end: 20090803
  9. NIZATIDINE [Concomitant]
     Dosage: 150 MG
     Route: 048
     Dates: start: 20060206, end: 20090803
  10. EXJADE [Suspect]
     Indication: MYELODYSPLASTIC SYNDROME
     Dosage: 500 MG,DAILY
     Route: 048
     Dates: start: 20080802, end: 20081106

REACTIONS (7)
  - OSTEOPOROSIS [None]
  - SPINAL COMPRESSION FRACTURE [None]
  - HYPONATRAEMIA [None]
  - DRUG INEFFECTIVE [None]
  - PRURITUS [None]
  - BLOOD ALKALINE PHOSPHATASE INCREASED [None]
  - AGRANULOCYTOSIS [None]
